FAERS Safety Report 19477889 (Version 1)
Quarter: 2021Q2

REPORT INFORMATION
  Report Type: Spontaneous
  Country: US (occurrence: US)
  Receive Date: 20210630
  Receipt Date: 20210630
  Transmission Date: 20210717
  Serious: No
  Sender: FDA-Public Use
  Company Number: US-NEOS THERAPEUTICS, LP-2020NEO00047

PATIENT
  Age: 8 Year
  Sex: Female

DRUGS (2)
  1. COTEMPLA XR?ODT [Suspect]
     Active Substance: METHYLPHENIDATE
     Dosage: UNK
     Dates: end: 2020
  2. COTEMPLA XR?ODT [Suspect]
     Active Substance: METHYLPHENIDATE
     Dosage: UNK
     Dates: start: 20201013

REACTIONS (1)
  - Rash [Not Recovered/Not Resolved]

NARRATIVE: CASE EVENT DATE: 20200921
